FAERS Safety Report 6081460-X (Version None)
Quarter: 2009Q1

REPORT INFORMATION
  Report Type: 
  Country: None (occurrence: None)
  Receive Date: 20090213
  Receipt Date: 20090209
  Transmission Date: 20090719
  Serious: Yes (Death)
  Sender: FDA-Public Use
  Company Number: CIP09000063

PATIENT
  Age: 83 Year
  Sex: Female

DRUGS (1)
  1. ACTONEL [Suspect]
     Dosage: 35 MG, ORAL
     Route: 048
     Dates: start: 20061211

REACTIONS (4)
  - GASTROOESOPHAGEAL REFLUX DISEASE [None]
  - HYPERTENSION [None]
  - ILEUS [None]
  - PNEUMONIA ASPIRATION [None]
